FAERS Safety Report 5403464-X (Version None)
Quarter: 2007Q3

REPORT INFORMATION
  Report Type: 
  Country: None (occurrence: None)
  Receive Date: 20070713
  Receipt Date: 20060908
  Transmission Date: 20080115
  Serious: Yes (Other)
  Sender: FDA-Public Use
  Company Number: 462793

PATIENT
  Age: 63 Year
  Sex: Female
  Weight: 60.3 kg

DRUGS (3)
  1. BONIVA [Suspect]
     Indication: OSTEOPENIA
     Dosage: 150 MG 1 PER MONTH ORAL
     Route: 048
     Dates: start: 20060701, end: 20060807
  2. LOPID [Concomitant]
  3. CAPOTEN [Concomitant]

REACTIONS (5)
  - ASTHENIA [None]
  - BALANCE DISORDER [None]
  - DIZZINESS [None]
  - NAUSEA [None]
  - VOMITING [None]
